FAERS Safety Report 6038622-7 (Version None)
Quarter: 2009Q1

REPORT INFORMATION
  Report Type: 
  Country: None (occurrence: None)
  Receive Date: 20090114
  Receipt Date: 20090114
  Transmission Date: 20090719
  Serious: Yes (Disabling, Other)
  Sender: FDA-Public Use
  Company Number: None

PATIENT
  Sex: Male
  Weight: 111.1313 kg

DRUGS (2)
  1. PLAVIX [Suspect]
     Indication: VENOUS STENT INSERTION
     Dosage: ONE TAB DAILY ORAL
     Route: 048
     Dates: start: 20080218
  2. PLAVIX [Suspect]
     Indication: VENOUS STENT INSERTION
     Dosage: ONE TAB DAILY ORAL
     Route: 048
     Dates: start: 20080830

REACTIONS (6)
  - BLOOD PRESSURE INCREASED [None]
  - PAIN OF SKIN [None]
  - PRURITUS [None]
  - SKIN WRINKLING [None]
  - SLEEP DISORDER DUE TO GENERAL MEDICAL CONDITION, INSOMNIA TYPE [None]
  - URTICARIA [None]
